FAERS Safety Report 23877792 (Version 2)
Quarter: 2024Q2

REPORT INFORMATION
  Report Type: Spontaneous
  Country: AU (occurrence: AU)
  Receive Date: 20240521
  Receipt Date: 20240529
  Transmission Date: 20240717
  Serious: Yes (Hospitalization)
  Sender: FDA-Public Use
  Company Number: AU-BoehringerIngelheim-2024-BI-028528

PATIENT

DRUGS (1)
  1. EMPAGLIFLOZIN\METFORMIN HYDROCHLORIDE [Suspect]
     Active Substance: EMPAGLIFLOZIN\METFORMIN HYDROCHLORIDE
     Indication: Diabetes mellitus
     Dosage: JARDIANCE 12.5/1000MG, TWO TABLETS IN THE MORNING.

REACTIONS (3)
  - Sleeve gastrectomy [Unknown]
  - Gastrooesophageal reflux disease [Unknown]
  - Extra dose administered [Unknown]
